FAERS Safety Report 22594593 (Version 3)
Quarter: 2024Q4

REPORT INFORMATION
  Report Type: Spontaneous
  Country: US (occurrence: US)
  Receive Date: 20230613
  Receipt Date: 20241204
  Transmission Date: 20250114
  Serious: Yes (Other)
  Sender: KYOWA
  Company Number: US-KYOWAKIRIN-2023BKK008621

PATIENT

DRUGS (5)
  1. POTELIGEO [Suspect]
     Active Substance: MOGAMULIZUMAB-KPKC
     Indication: Cutaneous T-cell lymphoma
     Dosage: UNK
     Route: 065
     Dates: start: 2019
  2. POTELIGEO [Suspect]
     Active Substance: MOGAMULIZUMAB-KPKC
     Dosage: UNK
     Route: 065
  3. POTELIGEO [Suspect]
     Active Substance: MOGAMULIZUMAB-KPKC
     Dosage: UNK
     Route: 065
  4. POTELIGEO [Suspect]
     Active Substance: MOGAMULIZUMAB-KPKC
     Dosage: UNK
     Route: 065
  5. POTELIGEO [Suspect]
     Active Substance: MOGAMULIZUMAB-KPKC
     Dosage: UNK
     Route: 065

REACTIONS (9)
  - Myasthenia gravis [Unknown]
  - Myocarditis [Unknown]
  - Bulbar palsy [Unknown]
  - Myositis [Unknown]
  - Stress cardiomyopathy [Unknown]
  - Respiratory muscle weakness [Unknown]
  - Rash maculo-papular [Unknown]
  - Muscular weakness [Unknown]
  - Pyrexia [Unknown]
